FAERS Safety Report 23751861 (Version 4)
Quarter: 2024Q2

REPORT INFORMATION
  Report Type: Report from Study
  Country: CA (occurrence: CA)
  Receive Date: 20240417
  Receipt Date: 20240528
  Transmission Date: 20240716
  Serious: Yes (Other)
  Sender: FDA-Public Use
  Company Number: CA-TAKEDA-2024TUS035403

PATIENT
  Age: 65 Year
  Sex: Male

DRUGS (4)
  1. VEDOLIZUMAB [Suspect]
     Active Substance: VEDOLIZUMAB
     Indication: Colitis ulcerative
     Dosage: 300 MILLIGRAM
     Route: 042
     Dates: start: 20230525
  2. VEDOLIZUMAB [Suspect]
     Active Substance: VEDOLIZUMAB
     Dosage: 300 MILLIGRAM, Q4WEEKS
     Route: 042
     Dates: start: 20240517
  3. ENTOCORT [Concomitant]
     Active Substance: BUDESONIDE
     Dosage: UNK
     Dates: start: 20230506
  4. MESALAMINE [Concomitant]
     Active Substance: MESALAMINE
     Dosage: 4.8 GRAM
     Dates: start: 201805

REACTIONS (6)
  - Rectal haemorrhage [Unknown]
  - General physical health deterioration [Unknown]
  - Therapeutic reaction time decreased [Recovering/Resolving]
  - Arthritis infective [Not Recovered/Not Resolved]
  - Off label use [Unknown]
  - Abdominal pain [Unknown]

NARRATIVE: CASE EVENT DATE: 20240517
